FAERS Safety Report 6587119-4 (Version None)
Quarter: 2010Q1

REPORT INFORMATION
  Report Type: 
  Country: None (occurrence: None)
  Receive Date: 20100217
  Receipt Date: 20090507
  Transmission Date: 20100710
  Serious: Yes (Other)
  Sender: FDA-Public Use
  Company Number: US-ALLERGAN-0905509US

PATIENT
  Age: 78 Year
  Sex: Female

DRUGS (4)
  1. BOTOX [Suspect]
     Indication: POSTURE ABNORMAL
     Dosage: UNK, SINGLE
     Route: 030
     Dates: start: 20081101, end: 20081101
  2. BOTOX [Suspect]
     Dosage: UNK, SINGLE
     Route: 030
     Dates: start: 20090101, end: 20090101
  3. BENICAR [Concomitant]
     Indication: HYPERTENSION
  4. CADUET [Concomitant]
     Indication: HYPERTENSION
     Dosage: UNK, QD
     Route: 048

REACTIONS (2)
  - DIZZINESS [None]
  - MUSCULAR WEAKNESS [None]
